FAERS Safety Report 8005660-4 (Version None)
Quarter: 2011Q4

REPORT INFORMATION
  Report Type: 
  Country: None (occurrence: None)
  Receive Date: 20111223
  Receipt Date: 20111209
  Transmission Date: 20120403
  Serious: Yes (Hospitalization)
  Sender: FDA-Public Use
  Company Number: GB-CELGENEUS-167-21880-11121481

PATIENT
  Sex: Male
  Weight: 70.8 kg

DRUGS (10)
  1. REVLIMID [Suspect]
     Route: 048
     Dates: start: 20111207, end: 20111208
  2. DIFFLAM [Concomitant]
     Dosage: 45 MILLILITER
     Route: 002
     Dates: start: 20111208
  3. CYCLOPHOSPHAMIDE [Suspect]
     Route: 048
     Dates: start: 20111126
  4. INSULIN [Concomitant]
     Dosage: 100 IU (INTERNATIONAL UNIT)
     Route: 041
     Dates: start: 20111208
  5. ARACHIS OLLI ENEMA [Concomitant]
     Route: 065
     Dates: start: 20111208
  6. CYCLOPHOSPHAMIDE [Suspect]
     Route: 048
     Dates: start: 20111022
  7. DEXAMETHASONE [Suspect]
     Route: 048
     Dates: start: 20111022
  8. REVLIMID [Suspect]
     Route: 048
     Dates: start: 20111022
  9. ALBUTEROL SULFATE AUTOHALER [Concomitant]
     Route: 050
     Dates: start: 20111208
  10. DEXAMETHASONE [Suspect]
     Route: 048
     Dates: start: 20111206

REACTIONS (6)
  - SYNCOPE [None]
  - PANCREATITIS [None]
  - ATRIAL FIBRILLATION [None]
  - HYPOTHERMIA [None]
  - ELECTROLYTE IMBALANCE [None]
  - SEPSIS [None]
